FAERS Safety Report 4282877-6 (Version None)
Quarter: 2004Q1

REPORT INFORMATION
  Report Type: 
  Country: None (occurrence: None)
  Receive Date: 20040130
  Receipt Date: 20030820
  Transmission Date: 20041129
  Serious: No
  Sender: FDA-Public Use
  Company Number: US-BRISTOL-MYERS SQUIBB COMPANY-12360509

PATIENT
  Age: 69 Year
  Sex: Female
  Weight: 66 kg

DRUGS (5)
  1. SERZONE [Suspect]
     Indication: DEPRESSION
     Dosage: TAKES 300-400MG (200MG IN MORNING + 100-200MG IN EVENING)
     Route: 048
     Dates: start: 19960101
  2. ASPIRIN [Concomitant]
     Dosage: OCCASIONALLY
  3. CALCIUM [Concomitant]
     Dosage: ^STOPPED TAKING ABOUT 3 MONTHS AGO^
  4. FISH OIL [Concomitant]
     Dosage: ^STOPPED TAKING ABOUT 3 MONTHS AGO^
  5. GARLIC [Concomitant]
     Dosage: ^STOPPED TAKING ABOUT 3 MONTHS AGO^

REACTIONS (2)
  - BLOOD CALCIUM INCREASED [None]
  - BLOOD URINE [None]
